FAERS Safety Report 7308375-0 (Version None)
Quarter: 2011Q1

REPORT INFORMATION
  Report Type: 
  Country: None (occurrence: None)
  Receive Date: 20110223
  Receipt Date: 20110215
  Transmission Date: 20110831
  Serious: Yes (Other)
  Sender: FDA-Public Use
  Company Number: B0701638A

PATIENT
  Age: 75 Year
  Sex: Male

DRUGS (1)
  1. CEFTAZIDIME [Suspect]
     Indication: APPENDICITIS
     Dosage: 2G PER DAY
     Route: 042
     Dates: start: 20090809, end: 20090812

REACTIONS (4)
  - HALLUCINATION, AUDITORY [None]
  - INSOMNIA [None]
  - NEUROLOGICAL SYMPTOM [None]
  - ALTERED STATE OF CONSCIOUSNESS [None]
